FAERS Safety Report 8286563-7 (Version None)
Quarter: 2012Q2

REPORT INFORMATION
  Report Type: 
  Country: None (occurrence: None)
  Receive Date: 20120416
  Receipt Date: 20120409
  Transmission Date: 20120825
  Serious: Yes (Other)
  Sender: FDA-Public Use
  Company Number: US-BAYER-2011-121474

PATIENT
  Age: 43 Year
  Sex: Female
  Weight: 52.154 kg

DRUGS (5)
  1. YASMIN [Suspect]
     Indication: CONTRACEPTION
     Dosage: UNK
     Dates: start: 20050601, end: 20071001
  2. PROTONIX [Concomitant]
     Indication: GASTRIC DISORDER
     Dosage: UNK
     Dates: start: 20091101
  3. YASMIN [Suspect]
     Indication: ACNE
  4. YASMIN [Suspect]
     Indication: PREMENSTRUAL SYNDROME
  5. IBUPROFEN (ADVIL) [Concomitant]

REACTIONS (4)
  - PAIN [None]
  - GASTRIC DISORDER [None]
  - HYPERPLASTIC CHOLECYSTOPATHY [None]
  - GALLBLADDER DISORDER [None]
